FAERS Safety Report 4432770-0 (Version None)
Quarter: 2004Q3

REPORT INFORMATION
  Report Type: 
  Country: None (occurrence: None)
  Receive Date: 20040721
  Receipt Date: 20040428
  Transmission Date: 20050211
  Serious: Yes (Other)
  Sender: FDA-Public Use
  Company Number: 2003121335

PATIENT
  Age: 39 Year
  Sex: Female

DRUGS (3)
  1. RELPAX [Suspect]
     Indication: MIGRAINE
     Dosage: AS NEEDED
     Dates: start: 20030901
  2. LIPITOR [Suspect]
     Indication: ILL-DEFINED DISORDER
     Dosage: ORAL
     Route: 048
     Dates: start: 20031101, end: 20031101
  3. ZOLOFT [Suspect]
     Indication: ILL-DEFINED DISORDER
     Dosage: ORAL
     Route: 048
     Dates: start: 20031101, end: 20031101

REACTIONS (3)
  - ARTHRALGIA [None]
  - NECK PAIN [None]
  - PAIN IN EXTREMITY [None]
